FAERS Safety Report 7079804-5 (Version None)
Quarter: 2010Q4

REPORT INFORMATION
  Report Type: 
  Country: None (occurrence: None)
  Receive Date: 20101102
  Receipt Date: 20101020
  Transmission Date: 20110411
  Serious: Yes (Other)
  Sender: FDA-Public Use
  Company Number: US-ELI_LILLY_AND_COMPANY-US201010004915

PATIENT
  Age: 41 Year
  Sex: Female
  Weight: 185.94 kg

DRUGS (17)
  1. BYETTA [Suspect]
     Indication: TYPE 2 DIABETES MELLITUS
     Dosage: 10 UG, 2/D
     Route: 058
     Dates: start: 20100601, end: 20100916
  2. CYMBALTA [Concomitant]
     Indication: TYPE 2 DIABETES MELLITUS
     Dates: start: 20080926
  3. FLUOXETINE HYDROCHLORIDE [Concomitant]
     Dates: start: 20060630
  4. AVANDIA [Concomitant]
     Indication: TYPE 2 DIABETES MELLITUS
     Dosage: 10 MG, 2/D
     Route: 048
     Dates: start: 20091104, end: 20100401
  5. LANTUS [Concomitant]
     Indication: TYPE 2 DIABETES MELLITUS
     Dates: start: 20100817
  6. METHOTREXATE SODIUM [Concomitant]
     Indication: RHEUMATOID ARTHRITIS
     Dosage: 20 MG, WEEKLY (1/W)
     Route: 058
  7. FOLIC ACID [Concomitant]
     Indication: RHEUMATOID ARTHRITIS
     Dosage: 3 MG, DAILY (1/D)
     Dates: start: 20071130
  8. GLIPIZIDE [Concomitant]
     Indication: TYPE 2 DIABETES MELLITUS
     Dates: start: 20100401
  9. GLUCOPHAGE [Concomitant]
     Indication: TYPE 2 DIABETES MELLITUS
     Dates: start: 20070504
  10. ETODOLAC [Concomitant]
     Dates: start: 20080623
  11. PLAQUENIL [Concomitant]
     Dates: start: 20071231
  12. ACETYLSALICYLIC ACID [Concomitant]
     Dosage: 81 MG, DAILY (1/D)
     Dates: start: 20060214
  13. HYDROCHLOROTHIAZIDE [Concomitant]
     Dates: start: 20080926
  14. COZAAR [Concomitant]
     Dates: start: 20100727
  15. PRAVASTATIN [Concomitant]
     Dates: start: 20090813
  16. PRILOSEC [Concomitant]
     Dates: start: 20071015
  17. CLARITIN [Concomitant]
     Dates: start: 20060303

REACTIONS (7)
  - HEADACHE [None]
  - HYPOAESTHESIA [None]
  - MENTAL STATUS CHANGES [None]
  - NAUSEA [None]
  - PARAESTHESIA [None]
  - SPEECH DISORDER [None]
  - TRANSIENT ISCHAEMIC ATTACK [None]
